FAERS Safety Report 4477106-4 (Version None)
Quarter: 2004Q4

REPORT INFORMATION
  Report Type: 
  Country: None (occurrence: None)
  Receive Date: 20041018
  Receipt Date: 20030529
  Transmission Date: 20050328
  Serious: Yes (Hospitalization, Other)
  Sender: FDA-Public Use
  Company Number: 200315056US

PATIENT
  Sex: Female
  Weight: 69.8 kg

DRUGS (7)
  1. ENOXAPARIN SODIUM [Suspect]
     Indication: ACUTE CORONARY SYNDROME
     Route: 058
     Dates: start: 20030515, end: 20030520
  2. LASIX [Suspect]
     Route: 042
     Dates: start: 20030515, end: 20030516
  3. ZESTRIL [Suspect]
     Route: 048
     Dates: start: 20030515
  4. ASPIRIN [Concomitant]
  5. NITROGLYCERIN [Concomitant]
     Dosage: DOSE: 1 INCH
     Route: 061
     Dates: start: 20030515
  6. K-DUR 10 [Concomitant]
     Route: 048
     Dates: start: 20030515
  7. COREG [Concomitant]
     Dates: start: 20030515

REACTIONS (5)
  - BLOOD CREATINE PHOSPHOKINASE INCREASED [None]
  - CARDIAC FAILURE CONGESTIVE [None]
  - MYOGLOBIN BLOOD INCREASED [None]
  - RENAL FAILURE ACUTE [None]
  - TROPONIN INCREASED [None]
